FAERS Safety Report 8611044-8 (Version None)
Quarter: 2012Q3

REPORT INFORMATION
  Report Type: 
  Country: None (occurrence: None)
  Receive Date: 20120822
  Receipt Date: 20120815
  Transmission Date: 20120928
  Serious: Yes (Other)
  Sender: FDA-Public Use
  Company Number: US-PFIZER INC-2012200835

PATIENT

DRUGS (1)
  1. NEURONTIN [Suspect]
     Dosage: UNKNOWN

REACTIONS (4)
  - TREMOR [None]
  - CONVULSION [None]
  - HEADACHE [None]
  - MUSCULOSKELETAL STIFFNESS [None]
